FAERS Safety Report 12896356 (Version 1)
Quarter: 2016Q4

REPORT INFORMATION
  Report Type: Spontaneous
  Country: US (occurrence: US)
  Receive Date: 20161031
  Receipt Date: 20161031
  Transmission Date: 20170207
  Serious: No
  Sender: FDA-Public Use
  Company Number: US-JAZZ-2016-US-016545

PATIENT
  Sex: Female

DRUGS (17)
  1. NATURE-THROID [Concomitant]
     Active Substance: THYROID, PORCINE
  2. VYVANSE [Concomitant]
     Active Substance: LISDEXAMFETAMINE DIMESYLATE
  3. MODAFINIL. [Concomitant]
     Active Substance: MODAFINIL
  4. ALBUTEROL SULFATE. [Concomitant]
     Active Substance: ALBUTEROL SULFATE
  5. CLONAZEPAM. [Concomitant]
     Active Substance: CLONAZEPAM
  6. SINGULAIR [Concomitant]
     Active Substance: MONTELUKAST SODIUM
  7. NUVARING [Concomitant]
     Active Substance: ETHINYL ESTRADIOL\ETONOGESTREL
  8. SPIRONOLACTONE. [Concomitant]
     Active Substance: SPIRONOLACTONE
  9. XYREM [Suspect]
     Active Substance: SODIUM OXYBATE
     Dosage: 4.5 G, BID
     Route: 048
     Dates: start: 201607
  10. DIFFERIN [Concomitant]
     Active Substance: ADAPALENE
  11. SAPHRIS [Concomitant]
     Active Substance: ASENAPINE MALEATE
  12. XYREM [Suspect]
     Active Substance: SODIUM OXYBATE
     Indication: NARCOLEPSY
     Dosage: 2.25 G, BID
     Route: 048
     Dates: start: 201606, end: 201606
  13. XYREM [Suspect]
     Active Substance: SODIUM OXYBATE
     Indication: CATAPLEXY
     Dosage: DOSE ADJUSTMENTS
     Route: 048
     Dates: start: 201606, end: 201607
  14. TRANYLCYPROMINE SULFATE. [Concomitant]
     Active Substance: TRANYLCYPROMINE SULFATE
  15. ZONISAMIDE. [Concomitant]
     Active Substance: ZONISAMIDE
  16. KETOCONAZOLE. [Concomitant]
     Active Substance: KETOCONAZOLE
  17. MOMETASONE FUROATE. [Concomitant]
     Active Substance: MOMETASONE FUROATE

REACTIONS (5)
  - Feeling abnormal [Unknown]
  - Weight decreased [Unknown]
  - Moaning [Not Recovered/Not Resolved]
  - Acne [Not Recovered/Not Resolved]
  - Nasal congestion [Not Recovered/Not Resolved]
